FAERS Safety Report 22087893 (Version 2)
Quarter: 2023Q1

REPORT INFORMATION
  Report Type: Report from Study
  Country: US (occurrence: US)
  Receive Date: 20230313
  Receipt Date: 20230315
  Transmission Date: 20230417
  Serious: Yes (Disabling)
  Sender: FDA-Public Use
  Company Number: US-ALNYLAM PHARMACEUTICALS, INC.-ALN-2023-000730

PATIENT

DRUGS (1)
  1. ONPATTRO [Suspect]
     Active Substance: PATISIRAN SODIUM
     Indication: Hereditary neuropathic amyloidosis
     Dosage: UNK
     Route: 065
     Dates: start: 20190613

REACTIONS (8)
  - Disability [Unknown]
  - Malaise [Unknown]
  - Limb discomfort [Unknown]
  - Nervous system disorder [Unknown]
  - Mobility decreased [Unknown]
  - Illness [Unknown]
  - Gait disturbance [Unknown]
  - Ill-defined disorder [Unknown]
